FAERS Safety Report 13305990 (Version 2)
Quarter: 2017Q2

REPORT INFORMATION
  Report Type: Spontaneous
  Country: US (occurrence: US)
  Receive Date: 20170308
  Receipt Date: 20170606
  Transmission Date: 20170830
  Serious: No
  Sender: FDA-Public Use
  Company Number: US-LUNDBECK-DKLU2027012

PATIENT
  Age: 56 Year
  Sex: Female

DRUGS (2)
  1. NORTHERA [Suspect]
     Active Substance: DROXIDOPA
     Indication: HYPOTENSION
     Route: 065
  2. NORTHERA [Suspect]
     Active Substance: DROXIDOPA
     Indication: AUTONOMIC FAILURE SYNDROME
     Dosage: SCHEDULE C/TITRATION COMPLETE
     Route: 065
     Dates: start: 20170218

REACTIONS (9)
  - Dyspnoea [Recovered/Resolved]
  - Asthenia [Unknown]
  - Decreased activity [Unknown]
  - Dizziness [Unknown]
  - Fatigue [Unknown]
  - Nausea [Unknown]
  - Headache [Recovered/Resolved]
  - Nausea [Unknown]
  - Dysstasia [Unknown]

NARRATIVE: CASE EVENT DATE: 20170220
